FAERS Safety Report 4504757-0 (Version None)
Quarter: 2004Q4

REPORT INFORMATION
  Report Type: 
  Country: None (occurrence: None)
  Receive Date: 20041118
  Receipt Date: 20041110
  Transmission Date: 20050328
  Serious: Yes (Hospitalization)
  Sender: FDA-Public Use
  Company Number: NZ-MERCK-0411NZL00017

PATIENT
  Age: 56 Year
  Sex: Female

DRUGS (1)
  1. VIOXX [Suspect]
     Indication: ARTHRITIS
     Route: 048

REACTIONS (3)
  - CONTUSION [None]
  - HEPATIC TRAUMA [None]
  - HEPATOTOXICITY [None]
